FAERS Safety Report 24264011 (Version 1)
Quarter: 2024Q3

REPORT INFORMATION
  Report Type: Spontaneous
  Country: DK (occurrence: DK)
  Receive Date: 20240829
  Receipt Date: 20240829
  Transmission Date: 20241016
  Serious: Yes (Hospitalization)
  Sender: PFIZER
  Company Number: DK-ROCHE-10000056036

PATIENT
  Age: 50 Year
  Sex: Female
  Weight: 86.5 kg

DRUGS (47)
  1. DOXORUBICIN HYDROCHLORIDE [Suspect]
     Active Substance: DOXORUBICIN HYDROCHLORIDE
     Indication: Diffuse large B-cell lymphoma
     Dosage: 104 MG, EVERY 3 WEEKS
     Route: 042
     Dates: start: 20240724
  2. RITUXIMAB [Suspect]
     Active Substance: RITUXIMAB
     Indication: Diffuse large B-cell lymphoma
     Dosage: 800 MG, EVERY 3 WEEKS
     Route: 042
     Dates: start: 20240724
  3. CYCLOPHOSPHAMIDE [Suspect]
     Active Substance: CYCLOPHOSPHAMIDE
     Indication: Diffuse large B-cell lymphoma
     Dosage: 1553 MG, EVERY 3 WEEKS (STRENGTH 1000 MG / 1 EA)
     Route: 042
     Dates: start: 20240724
  4. POLATUZUMAB VEDOTIN [Suspect]
     Active Substance: POLATUZUMAB VEDOTIN
     Indication: Diffuse large B-cell lymphoma
     Dosage: 166 MG, EVERY 3 WEEKS
     Route: 042
     Dates: start: 20240725
  5. GENTAMICIN [Concomitant]
     Active Substance: GENTAMICIN
     Indication: Infection
     Dosage: 360 MG, 1X/DAY
     Route: 042
     Dates: start: 20240811, end: 20240812
  6. PREDNISOLONE [Concomitant]
     Active Substance: PREDNISOLONE
     Indication: Diffuse large B-cell lymphoma
     Dosage: 100 MG EVERY 3 WEEKS (START DATE OF MOST RECENT DOSE OF STUDY DRUG PRIOR TO AE: 28JUL2024)
     Route: 048
     Dates: start: 20240724
  7. PREDNISOLONE [Concomitant]
     Active Substance: PREDNISOLONE
     Dosage: 50 MG, 1X/DAY
     Route: 048
     Dates: start: 20240716, end: 20240723
  8. PREDNISOLONE [Concomitant]
     Active Substance: PREDNISOLONE
     Dosage: 50 MG, 1X/DAY
     Route: 048
     Dates: start: 20240729, end: 20240729
  9. PREDNISOLONE [Concomitant]
     Active Substance: PREDNISOLONE
     Dosage: 25 MG, 1X/DAY
     Route: 048
     Dates: start: 20240730, end: 20240730
  10. PREDNISOLONE [Concomitant]
     Active Substance: PREDNISOLONE
     Dosage: 12.5 MG, 1X/DAY
     Route: 048
     Dates: start: 20240731, end: 20240731
  11. MORPHINE SULFATE [Concomitant]
     Active Substance: MORPHINE SULFATE
     Indication: Arthralgia
     Dosage: 20 MG EVERY 0.5 DAY
     Route: 048
     Dates: start: 20240624, end: 20240719
  12. MORPHINE SULFATE [Concomitant]
     Active Substance: MORPHINE SULFATE
     Indication: Pain
  13. OZEMPIC [Concomitant]
     Active Substance: SEMAGLUTIDE
     Indication: Diabetes mellitus
     Dosage: 1 MG, WEEKLY
     Route: 058
     Dates: start: 20230713, end: 20240724
  14. PEGFILGRASTIM [Concomitant]
     Active Substance: PEGFILGRASTIM
     Dosage: 6 MG, 1X/DAY
     Route: 058
     Dates: start: 20240727, end: 20240727
  15. ALLOPURINOL [Concomitant]
     Active Substance: ALLOPURINOL
     Dosage: 300 MG, 1X/DAY
     Route: 048
     Dates: start: 20240724
  16. SODIUM CHLORIDE [Concomitant]
     Active Substance: SODIUM CHLORIDE
     Indication: Pyrexia
     Dosage: 1000 ML, SINGLE
     Route: 042
     Dates: start: 20240811, end: 20240811
  17. INSULIN ASPART [Concomitant]
     Active Substance: INSULIN ASPART
     Indication: Diabetes mellitus
     Dosage: 6 IU, 1X/DAY
     Route: 058
     Dates: start: 20240724
  18. INSULIN ASPART [Concomitant]
     Active Substance: INSULIN ASPART
     Dosage: 2 IU, AS NEEDED
     Route: 058
     Dates: start: 20240729
  19. AMOXICILLIN\CLAVULANATE POTASSIUM [Concomitant]
     Active Substance: AMOXICILLIN\CLAVULANATE POTASSIUM
     Indication: C-reactive protein increased
     Dosage: 500 MG EVERY 0.33 DAY
     Route: 048
     Dates: start: 20240709, end: 20240725
  20. ZOLPIDEM [Concomitant]
     Active Substance: ZOLPIDEM TARTRATE
     Indication: Insomnia
     Dosage: 10 MG, AS NEEDED
     Route: 048
     Dates: start: 20240712
  21. GABAPENTIN [Concomitant]
     Active Substance: GABAPENTIN
     Indication: Pain
     Dosage: 600 MG EVERY 0.33 DAY
     Route: 048
     Dates: start: 20240722
  22. FERROSULFAT [Concomitant]
     Dosage: 100 MG, 1X/DAY
     Route: 048
     Dates: start: 20240630, end: 20240725
  23. VALACYCLOVIR HYDROCHLORIDE [Concomitant]
     Active Substance: VALACYCLOVIR HYDROCHLORIDE
     Dosage: 500 MG EVERY 0.5 DAY
     Route: 048
     Dates: start: 20240724
  24. MORPHINE HYDROCHLORIDE [Concomitant]
     Active Substance: MORPHINE HYDROCHLORIDE
     Indication: Arthralgia
     Dosage: 10 MG, AS NEEDED
     Route: 048
     Dates: start: 20240609
  25. CALCIUM [Concomitant]
     Active Substance: CALCIUM
     Dosage: 400 MG EVERY 0.5 DAY
     Route: 048
     Dates: start: 20240715
  26. IRON POLYMALTOSE [Concomitant]
     Active Substance: IRON POLYMALTOSE
     Indication: Anaemia
     Dosage: 186 ML, SINGLE
     Route: 042
     Dates: start: 20240811, end: 20240811
  27. IRON POLYMALTOSE [Concomitant]
     Active Substance: IRON POLYMALTOSE
     Dosage: 268 ML, SINGLE
     Route: 042
     Dates: start: 20240811, end: 20240811
  28. IRON POLYMALTOSE [Concomitant]
     Active Substance: IRON POLYMALTOSE
     Dosage: 265 ML, SINGLE
     Route: 042
     Dates: start: 20240812, end: 20240812
  29. LACTULOSE [Concomitant]
     Active Substance: LACTULOSE
     Indication: Constipation
     Dosage: 15 ML EVERY 0.5 DAY
     Route: 048
     Dates: start: 20240703
  30. PENICILLIN G [Concomitant]
     Active Substance: PENICILLIN G
     Indication: Infection
     Dosage: 3 G, 1X/DAY
     Route: 042
     Dates: start: 20240811
  31. ONDANSETRON [Concomitant]
     Active Substance: ONDANSETRON
     Dosage: 8 MG EVERY 0.5 DAY
     Route: 048
     Dates: start: 20240724, end: 20240726
  32. TINZAPARIN [Concomitant]
     Active Substance: TINZAPARIN
     Dosage: 4500 IU, 1X/DAY
     Route: 058
     Dates: start: 20240630, end: 20240725
  33. POLYETHYLENE GLYCOL 3350\POTASSIUM CHLORIDE\SODIUM BICARBONATE\SODIUM [Concomitant]
     Active Substance: POLYETHYLENE GLYCOL 3350\POTASSIUM CHLORIDE\SODIUM BICARBONATE\SODIUM CHLORIDE
     Indication: Constipation
     Dosage: 1 DF, AS NEEDED
     Dates: start: 20240725
  34. ACETAMINOPHEN [Concomitant]
     Active Substance: ACETAMINOPHEN
     Indication: Pain
     Dosage: 1 G
     Route: 048
     Dates: start: 20240723, end: 20240723
  35. ACETAMINOPHEN [Concomitant]
     Active Substance: ACETAMINOPHEN
     Dosage: 1000 MG EVERY 0.5 DAY
     Route: 048
     Dates: start: 20240630
  36. MAGNESIUMHYDROXIDE [Concomitant]
     Indication: Constipation
     Dosage: 1000 MG, 1X/DAY
     Route: 048
     Dates: start: 20230630
  37. CETIRIZINE HYDROCHLORIDE [Concomitant]
     Active Substance: CETIRIZINE HYDROCHLORIDE
     Dosage: 10 MG, 1X/DAY
     Route: 048
     Dates: start: 20240723, end: 20240723
  38. SODIUM PICOSULFATE [Concomitant]
     Active Substance: SODIUM PICOSULFATE
     Indication: Constipation
     Dosage: EVERY 0.5 DAY
     Route: 048
     Dates: start: 20240703
  39. PANTOPRAZOLE [Concomitant]
     Active Substance: PANTOPRAZOLE
     Dosage: 40 MG, EVERY 0.5 DAY
     Route: 048
     Dates: start: 20240612, end: 20240725
  40. PANTOPRAZOLE [Concomitant]
     Active Substance: PANTOPRAZOLE
     Dosage: 40 MG, 1X/DAY
     Route: 048
     Dates: start: 20240630
  41. FLUCONAZOLE [Concomitant]
     Active Substance: FLUCONAZOLE
     Indication: Candida infection
     Dosage: 400 MG, 1X/DAY
     Route: 048
     Dates: start: 20240731, end: 20240804
  42. MORPHINE HYDROCHLORIDE [Concomitant]
     Active Substance: MORPHINE HYDROCHLORIDE
     Indication: Pain
     Dosage: 0.5 ML, AS NEEDED
     Route: 042
     Dates: start: 20240630, end: 20240725
  43. SULFAMETHOXAZOLE\TRIMETHOPRIM [Concomitant]
     Active Substance: SULFAMETHOXAZOLE\TRIMETHOPRIM
     Dosage: 1 DF, DAILY
     Route: 048
     Dates: start: 20240724
  44. LOSARTAN [Concomitant]
     Active Substance: LOSARTAN\LOSARTAN POTASSIUM
     Indication: Hypertension
     Dosage: 50 MG, 1X/DAY
     Route: 048
     Dates: start: 20240501
  45. METOPROLOL SUCCINATE [Concomitant]
     Active Substance: METOPROLOL SUCCINATE
     Indication: Tachycardia
     Dosage: 50 MG, 1X/DAY
     Route: 048
     Dates: start: 20240624
  46. INSULIN GLARGINE [Concomitant]
     Active Substance: INSULIN GLARGINE
     Indication: Type 2 diabetes mellitus
     Dosage: 38 IU, 1X/DAY
     Route: 058
     Dates: start: 20210119
  47. IBUPROFEN [Concomitant]
     Active Substance: IBUPROFEN
     Indication: Pain
     Dosage: 400 MG, AS NEEDED
     Route: 048
     Dates: start: 20240709, end: 20240725

REACTIONS (1)
  - Febrile neutropenia [Recovering/Resolving]

NARRATIVE: CASE EVENT DATE: 20240811
